FAERS Safety Report 6405667-4 (Version None)
Quarter: 2009Q4

REPORT INFORMATION
  Report Type: 
  Country: None (occurrence: None)
  Receive Date: 20091019
  Receipt Date: 20091014
  Transmission Date: 20100525
  Serious: Yes (Other)
  Sender: FDA-Public Use
  Company Number: B0598222A

PATIENT
  Age: 46 Year
  Sex: Male

DRUGS (5)
  1. PAXIL [Suspect]
     Indication: DRUG USE FOR UNKNOWN INDICATION
     Route: 048
  2. BUP-4 [Concomitant]
     Indication: POLLAKIURIA
     Route: 048
  3. SOLANAX [Concomitant]
     Route: 048
  4. TRYPTANOL [Concomitant]
     Route: 048
  5. AM [Concomitant]
     Route: 048

REACTIONS (2)
  - AGGRESSION [None]
  - ALTERED STATE OF CONSCIOUSNESS [None]
